FAERS Safety Report 12391356 (Version 1)
Quarter: 2016Q2

REPORT INFORMATION
  Report Type: Spontaneous
  Country: DE (occurrence: DE)
  Receive Date: 20160520
  Receipt Date: 20160520
  Transmission Date: 20160815
  Serious: Yes (Life-Threatening, Other)
  Sender: FDA-Public Use
  Company Number: DE-ROXANE LABORATORIES, INC.-2016-RO-00890RO

PATIENT
  Age: 42 Year
  Sex: Male

DRUGS (3)
  1. AMITRIPTYLINE [Suspect]
     Active Substance: AMITRIPTYLINE
     Indication: DEPRESSION
     Route: 065
  2. LITHIUM CARBONATE EXTENDED RELEASE TABLETS USP, 450MG [Suspect]
     Active Substance: LITHIUM CARBONATE
     Indication: DEPRESSION
     Route: 065
  3. VENLAFAXINE [Suspect]
     Active Substance: VENLAFAXINE HYDROCHLORIDE
     Indication: DEPRESSION
     Route: 065

REACTIONS (14)
  - Agitation [None]
  - Cerebellar syndrome [None]
  - Ulnar nerve injury [Not Recovered/Not Resolved]
  - Dysmetria [None]
  - Pneumonia [None]
  - Enuresis [None]
  - Toxicity to various agents [Recovered/Resolved]
  - Intentional overdose [None]
  - Confusional state [None]
  - Myoclonus [None]
  - Anal incontinence [None]
  - Ataxia [None]
  - Hyporeflexia [None]
  - Suicide attempt [Recovered/Resolved]
